FAERS Safety Report 11907873 (Version 7)
Quarter: 2016Q2

REPORT INFORMATION
  Report Type: Report from Study
  Country: DE (occurrence: DE)
  Receive Date: 20160111
  Receipt Date: 20160401
  Transmission Date: 20160815
  Serious: Yes (Other)
  Sender: FDA-Public Use
  Company Number: DE-AMGEN-DEUCT2016001702

PATIENT
  Age: 11 Year
  Sex: Male
  Weight: 46.5 kg

DRUGS (16)
  1. DEXAMETHASONE. [Concomitant]
     Active Substance: DEXAMETHASONE
     Dosage: 4-14 MG UNK
     Route: 042
     Dates: start: 20151222, end: 20151224
  2. OMEPRAZOL                          /00661201/ [Concomitant]
     Active Substance: OMEPRAZOLE
     Dosage: 20 MG, UNK
     Route: 048
     Dates: start: 20151217, end: 20160110
  3. COTRIM D.S. [Concomitant]
     Active Substance: SULFAMETHOXAZOLE\TRIMETHOPRIM
     Dosage: 80-160 MG, UNK
     Route: 048
     Dates: start: 20151204, end: 20160101
  4. DIARONT MONO [Concomitant]
     Dosage: 1 UNK, UNK
     Route: 048
     Dates: start: 20151216, end: 20160122
  5. VFEND [Concomitant]
     Active Substance: VORICONAZOLE
     Dosage: 300-385 MG, UNK
     Dates: start: 20151216, end: 20160110
  6. DECOSTRIOL [Concomitant]
     Active Substance: CALCITRIOL
     Dosage: 0.25 MUG, UNK
     Route: 048
     Dates: start: 20151217
  7. ACICLOVIR [Concomitant]
     Active Substance: ACYCLOVIR
     Dosage: 200-400 MG, UNK
     Route: 048
     Dates: start: 20151216, end: 20160131
  8. METHOTREXATE (METHOTREXATE SODIUM) [Concomitant]
     Active Substance: METHOTREXATE SODIUM
     Dosage: 10 MG, UNK
     Route: 037
     Dates: start: 20151222, end: 20151222
  9. MAGNESIUM [Concomitant]
     Active Substance: MAGNESIUM
     Dosage: 1 UNK, UNK
     Route: 048
     Dates: start: 20151221, end: 20160110
  10. BLINATUMOMAB [Suspect]
     Active Substance: BLINATUMOMAB
     Indication: ACUTE LYMPHOCYTIC LEUKAEMIA
     Dosage: 5-22.9 MUG/M2, UNK
     Route: 042
     Dates: start: 20151223
  11. COLISTIN [Concomitant]
     Active Substance: COLISTIN
     Dosage: UNK
     Route: 048
     Dates: start: 20151204, end: 20151205
  12. ZOFRAN [Concomitant]
     Active Substance: ONDANSETRON HYDROCHLORIDE
     Dosage: 8 MG, UNK
     Route: 048
     Dates: start: 20151217, end: 20151217
  13. KALIUMCHLORID [Concomitant]
     Dosage: 600 UNK, UNK
     Route: 048
     Dates: start: 20151216, end: 20151224
  14. CALCIUM [Concomitant]
     Active Substance: CALCIUM
     Dosage: 600 MG, UNK
     Route: 048
     Dates: start: 20151216
  15. LASIX [Concomitant]
     Active Substance: FUROSEMIDE
     Dosage: 10 MG, UNK
     Route: 042
     Dates: start: 20151222
  16. IBUPROFEN. [Concomitant]
     Active Substance: IBUPROFEN
     Dosage: 400 MG, UNK
     Route: 048
     Dates: start: 20151217, end: 20151217

REACTIONS (3)
  - Pyrexia [Recovered/Resolved]
  - Accidental overdose [Recovered/Resolved]
  - C-reactive protein increased [Recovered/Resolved]

NARRATIVE: CASE EVENT DATE: 20151227
